FAERS Safety Report 6641465-4 (Version None)
Quarter: 2010Q1

REPORT INFORMATION
  Report Type: 
  Country: None (occurrence: None)
  Receive Date: 20100318
  Receipt Date: 20100305
  Transmission Date: 20100710
  Serious: Yes (Death, Life-Threatening, Hospitalization)
  Sender: FDA-Public Use
  Company Number: GB-WATSON-2009-10921

PATIENT

DRUGS (5)
  1. SIMVASTATIN (WATSON LABORATORIES) [Suspect]
     Indication: CARDIOVASCULAR EVENT PROPHYLAXIS
     Dosage: 40 MG, UNKNOWN
     Route: 048
     Dates: end: 20081118
  2. TRIMETHOPRIM [Suspect]
     Indication: STAPHYLOCOCCAL INFECTION
     Dosage: 200 MG, BID
     Route: 048
     Dates: start: 20081001
  3. FUSIDIC ACID [Suspect]
     Indication: STAPHYLOCOCCAL INFECTION
     Dosage: 500 MG, TID
     Route: 048
     Dates: start: 20081001
  4. RAMIPRIL [Concomitant]
     Indication: HYPERTENSION
     Route: 048
  5. BUMETANIDE [Concomitant]
     Indication: CARDIOVASCULAR EVENT PROPHYLAXIS
     Dosage: UNK
     Route: 048

REACTIONS (6)
  - BLOOD CREATINE PHOSPHOKINASE INCREASED [None]
  - DRUG INTERACTION [None]
  - MYOPATHY [None]
  - RHABDOMYOLYSIS [None]
  - SEPSIS [None]
  - URINARY TRACT INFECTION [None]
